FAERS Safety Report 10182851 (Version 1)
Quarter: 2014Q2

REPORT INFORMATION
  Report Type: Spontaneous
  Country: AU (occurrence: AU)
  Receive Date: 20140520
  Receipt Date: 20140520
  Transmission Date: 20141212
  Serious: Yes (Other)
  Sender: FDA-Public Use
  Company Number: AU-ACTAVIS PTY LTD-2014-09889

PATIENT
  Age: 57 Year
  Sex: Female

DRUGS (1)
  1. ZOLEDRONIC ACID [Suspect]
     Indication: OSTEOPOROSIS
     Dosage: UNKNOWN, SINGLE INFUSION
     Route: 042

REACTIONS (7)
  - Dermatomyositis [Recovered/Resolved]
  - Gait disturbance [None]
  - Headache [None]
  - Fatigue [None]
  - Weight decreased [None]
  - Constipation [None]
  - Abdominal distension [None]
